FAERS Safety Report 24638021 (Version 1)
Quarter: 2024Q4

REPORT INFORMATION
  Report Type: Spontaneous
  Country: US (occurrence: US)
  Receive Date: 20241119
  Receipt Date: 20241119
  Transmission Date: 20250114
  Serious: No
  Sender: PFIZER
  Company Number: US-PFIZER INC-PV202400148304

PATIENT
  Age: 76 Year

DRUGS (1)
  1. ZITHROMAX [Suspect]
     Active Substance: AZITHROMYCIN DIHYDRATE
     Dosage: 250 MG, ALTERNATE DAY (EVERY MON, WED, + FRI)

REACTIONS (1)
  - Inappropriate schedule of product administration [Unknown]
